FAERS Safety Report 8425416-8 (Version None)
Quarter: 2012Q2

REPORT INFORMATION
  Report Type: 
  Country: None (occurrence: None)
  Receive Date: 20120605
  Receipt Date: 20120605
  Transmission Date: 20120825
  Serious: No
  Sender: FDA-Public Use
  Company Number: None

PATIENT
  Age: 60 Year
  Sex: Female
  Weight: 68.0396 kg

DRUGS (1)
  1. NITROFURANTOIN [Suspect]
     Indication: URINARY TRACT INFECTION
     Dosage: 100MG TWICE PER DAY PO
     Route: 048
     Dates: start: 20120515, end: 20120521

REACTIONS (2)
  - NEURALGIA [None]
  - MYALGIA [None]
